FAERS Safety Report 25062434 (Version 1)
Quarter: 2025Q1

REPORT INFORMATION
  Report Type: Spontaneous
  Country: US (occurrence: US)
  Receive Date: 20250311
  Receipt Date: 20250311
  Transmission Date: 20250409
  Serious: Yes (Other)
  Sender: INTRA-CELLULAR THERAPIES
  Company Number: US-INTRA-CELLULAR THERAPIES, INC.-2025ICT00277

PATIENT
  Age: 79 Year
  Sex: Male

DRUGS (1)
  1. CAPLYTA [Suspect]
     Active Substance: LUMATEPERONE
     Indication: Bipolar disorder
     Dosage: 10.5 MG, 1X/DAY
     Dates: start: 20250210

REACTIONS (2)
  - Dementia [Not Recovered/Not Resolved]
  - Orthostatic hypotension [Not Recovered/Not Resolved]

NARRATIVE: CASE EVENT DATE: 20250201
